FAERS Safety Report 7622556-8 (Version None)
Quarter: 2011Q3

REPORT INFORMATION
  Report Type: 
  Country: None (occurrence: None)
  Receive Date: 20110719
  Receipt Date: 20110719
  Transmission Date: 20111222
  Serious: Yes (Other)
  Sender: FDA-Public Use
  Company Number: None

PATIENT
  Age: 31 Year
  Sex: Female
  Weight: 52.1637 kg

DRUGS (1)
  1. AMOXICILLIN AND CLAVULANATE POTASSIUM [Suspect]
     Indication: SINUSITIS
     Dosage: 1 TAB TWO TIMES A DAY PO
     Route: 048
     Dates: start: 20110711, end: 20110715

REACTIONS (3)
  - OROPHARYNGEAL PAIN [None]
  - SINUS HEADACHE [None]
  - MALAISE [None]
